FAERS Safety Report 23340444 (Version 5)
Quarter: 2024Q3

REPORT INFORMATION
  Report Type: Report from Study
  Country: JP (occurrence: JP)
  Receive Date: 20231227
  Receipt Date: 20240711
  Transmission Date: 20241017
  Serious: Yes (Life-Threatening, Hospitalization, Other)
  Sender: GENMAB
  Company Number: JP-GENMAB-2023-02281

PATIENT
  Age: 79 Year
  Sex: Female
  Weight: 46.2 kg

DRUGS (9)
  1. EPKINLY [Suspect]
     Active Substance: EPCORITAMAB-BYSP
     Indication: High grade B-cell lymphoma refractory
     Dosage: 0.16 MILLIGRAM, SINGLE
     Route: 058
     Dates: start: 20231127, end: 20231127
  2. EPKINLY [Suspect]
     Active Substance: EPCORITAMAB-BYSP
     Dosage: 0.8 MILLIGRAM, SINGLE
     Route: 058
     Dates: start: 20231204, end: 20231204
  3. EPKINLY [Suspect]
     Active Substance: EPCORITAMAB-BYSP
     Dosage: 48 MILLIGRAM, WEEKLY
     Route: 058
     Dates: start: 20231211, end: 20231225
  4. CORTICOTROPIN [Suspect]
     Active Substance: CORTICOTROPIN
     Dosage: UNK
  5. UNSPECIFIED INGREDIENT [Suspect]
     Active Substance: UNSPECIFIED INGREDIENT
     Dosage: UNK
  6. PREDNISOLONE [Concomitant]
     Active Substance: PREDNISOLONE
     Indication: Prophylaxis
     Dosage: UNK, DAY 1, DAY 2, DAY 3 AND DAY 4 OF ADMINISTRATION OF EPKINLY SUBCUTANEOUS INJECTION (EPCORITAMAB)
     Dates: start: 20231127
  7. DEXAMETHASONE [Concomitant]
     Active Substance: DEXAMETHASONE
     Indication: Prophylaxis
     Dosage: UNK, DAY 1, DAY 2, DAY 3 AND DAY 4 OF ADMINISTRATION OF EPKINLY SUBCUTANEOUS INJECTION (EPCORITAMAB)
     Dates: start: 20231127
  8. DIPHENHYDRAMINE [Concomitant]
     Active Substance: DIPHENHYDRAMINE
     Indication: Prophylaxis
     Dosage: UNK, DAY 1 OF ADMINISTRATION OF EPKINLY SUBCUTANEOUS INJECTION (EPCORITAMAB) (GENETICAL RECOMBINATIO
     Dates: start: 20231127, end: 20231218
  9. ACETAMINOPHEN [Concomitant]
     Active Substance: ACETAMINOPHEN
     Indication: Prophylaxis
     Dosage: UNK, DAY 1 OF ADMINISTRATION OF EPKINLY SUBCUTANEOUS INJECTION (EPCORITAMAB) (GENETICAL RECOMBINATIO
     Dates: start: 20231127, end: 20231218

REACTIONS (8)
  - Pneumonia [Not Recovered/Not Resolved]
  - Hypogammaglobulinaemia [Not Recovered/Not Resolved]
  - Platelet count decreased [Not Recovered/Not Resolved]
  - Cytokine release syndrome [Recovered/Resolved]
  - Emphysematous cystitis [Recovered/Resolved]
  - Malaise [Recovered/Resolved]
  - Neutrophil count decreased [Not Recovered/Not Resolved]
  - Blood glucose increased [Not Recovered/Not Resolved]

NARRATIVE: CASE EVENT DATE: 20231128
